FAERS Safety Report 4667117-8 (Version None)
Quarter: 2005Q2

REPORT INFORMATION
  Report Type: 
  Country: None (occurrence: None)
  Receive Date: 20050520
  Receipt Date: 20050413
  Transmission Date: 20051028
  Serious: Yes (Other)
  Sender: FDA-Public Use
  Company Number: PHBS2005IT05339

PATIENT
  Age: 65 Year
  Sex: Male

DRUGS (2)
  1. THALIDOMIDE [Concomitant]
     Indication: MULTIPLE MYELOMA
     Dosage: 100 MG/D
     Route: 048
     Dates: start: 20040510, end: 20050406
  2. ZOMETA [Suspect]
     Indication: OSTEOLYSIS
     Dosage: 4 MG, QMO
     Dates: start: 20040501, end: 20050228

REACTIONS (4)
  - ASEPTIC NECROSIS BONE [None]
  - JAW DISORDER [None]
  - PAIN IN JAW [None]
  - TOOTH EXTRACTION [None]
